FAERS Safety Report 15073809 (Version 1)
Quarter: 2018Q2

REPORT INFORMATION
  Report Type: Spontaneous
  Country: US (occurrence: US)
  Receive Date: 20180606
  Receipt Date: 20180606
  Transmission Date: 20180711
  Serious: Yes (Hospitalization)
  Sender: FDA-Public Use
  Company Number: None

PATIENT
  Age: 117 Year
  Sex: Male
  Weight: 63.64 kg

DRUGS (1)
  1. GABAPENTIN. [Suspect]
     Active Substance: GABAPENTIN
     Indication: PAIN
     Route: 048
     Dates: start: 20171209, end: 20171217

REACTIONS (2)
  - Sedation [None]
  - Somnolence [None]

NARRATIVE: CASE EVENT DATE: 20171222
